FAERS Safety Report 6152573-9 (Version None)
Quarter: 2009Q2

REPORT INFORMATION
  Report Type: 
  Country: None (occurrence: None)
  Receive Date: 20090413
  Receipt Date: 20090408
  Transmission Date: 20091009
  Serious: Yes (Hospitalization)
  Sender: FDA-Public Use
  Company Number: US-BRISTOL-MYERS SQUIBB COMPANY-14581250

PATIENT
  Age: 64 Year
  Sex: Male
  Weight: 79 kg

DRUGS (3)
  1. CISPLATIN [Suspect]
     Indication: PHARYNGEAL CANCER STAGE UNSPECIFIED
     Dosage: INITIAL DOSE: 10FEB2009;ON DAY 1 AND 22
     Dates: start: 20090309, end: 20090309
  2. ERBITUX [Suspect]
     Indication: PHARYNGEAL CANCER STAGE UNSPECIFIED
     Dosage: INITIAL DOSE: 10FEB2009; 1 WEEK PRIOR TO CHEMOTHERAPY AND WEEKLY FOR 7 MORE WEEKS
     Dates: start: 20090316, end: 20090316
  3. RADIATION THERAPY [Suspect]
     Indication: PHARYNGEAL CANCER STAGE UNSPECIFIED
     Dosage: DF= 56GY ((TOTAL DOSE);EXTERNAL BEAM IMRT NO OF FRACTION:35 NO OF ELAPSED DAYS:40
     Dates: start: 20090210, end: 20090320

REACTIONS (4)
  - DEHYDRATION [None]
  - DYSPHAGIA [None]
  - GRANULOCYTE COUNT DECREASED [None]
  - WHITE BLOOD CELL COUNT DECREASED [None]
